FAERS Safety Report 5977833-3 (Version None)
Quarter: 2008Q4

REPORT INFORMATION
  Report Type: 
  Country: None (occurrence: None)
  Receive Date: 20081203
  Receipt Date: 20081127
  Transmission Date: 20090506
  Serious: Yes (Hospitalization, Other)
  Sender: FDA-Public Use
  Company Number: ES-BRISTOL-MYERS SQUIBB COMPANY-14417869

PATIENT
  Age: 50 Year
  Sex: Female

DRUGS (4)
  1. CETUXIMAB [Suspect]
     Indication: COLORECTAL CANCER
     Dosage: 24JAN08-10APR08,05MAY08-27MAY08,16SEP08-07OCT08.
     Route: 042
     Dates: start: 20080124
  2. OXALIPLATIN [Suspect]
     Indication: COLORECTAL CANCER
     Dosage: 24JAN08-06MAR08,27MAR08-27MAR08(180MG),16SEP08-16SEP08(240MG).
     Route: 042
     Dates: start: 20080124
  3. CAPECITABINE [Suspect]
     Indication: COLORECTAL CANCER
     Dosage: 24JAN08-L0APR08(3300MG),05MAY08-08MAY08(3600MG),09MAY08-03JUN08(2600MG),16SEP08-29SEP08(3300MG).
     Route: 048
     Dates: start: 20080124
  4. RADIOTHERAPY [Suspect]
     Indication: COLORECTAL CANCER
     Dosage: 1 DOSAGE FORM - 46.8GY
     Dates: start: 20080505, end: 20080613

REACTIONS (1)
  - PANCREATITIS [None]
